FAERS Safety Report 7202469-6 (Version None)
Quarter: 2010Q4

REPORT INFORMATION
  Report Type: 
  Country: None (occurrence: None)
  Receive Date: 20101229
  Receipt Date: 20101220
  Transmission Date: 20110411
  Serious: Yes (Other)
  Sender: FDA-Public Use
  Company Number: B0690753A

PATIENT
  Age: 76 Year
  Sex: Male

DRUGS (4)
  1. REQUIP [Suspect]
     Route: 048
     Dates: start: 20101217
  2. MENESIT [Concomitant]
     Route: 048
  3. FUROSEMIDE [Concomitant]
  4. MAINTATE [Concomitant]

REACTIONS (1)
  - ANAL HAEMORRHAGE [None]
